FAERS Safety Report 7892601-3 (Version None)
Quarter: 2011Q4

REPORT INFORMATION
  Report Type: 
  Country: None (occurrence: None)
  Receive Date: 20111026
  Receipt Date: 20111013
  Transmission Date: 20120403
  Serious: Yes (Hospitalization)
  Sender: FDA-Public Use
  Company Number: 2011PROUSA00709

PATIENT
  Age: 73 Year
  Sex: Male
  Weight: 71.7 kg

DRUGS (13)
  1. ATIVAN [Suspect]
     Indication: NAUSEA
     Dosage: 1 MG, SINGLE
     Dates: start: 20111013, end: 20111013
  2. ATIVAN [Suspect]
     Indication: VOMITING
     Dosage: 1 MG, SINGLE
     Dates: start: 20111013, end: 20111013
  3. METOPROLOL TARTRATE [Concomitant]
  4. GLIPIZIDE [Concomitant]
  5. ASPIRIN [Concomitant]
  6. LISINOPRIL [Concomitant]
  7. METFORMIN HCL [Concomitant]
  8. PROVENGE [Suspect]
     Indication: PROSTATE CANCER METASTATIC
     Dosage: 250 ML, SINGLE, INTRAVENOUS
     Route: 042
     Dates: start: 20110929, end: 20110929
  9. PROVENGE [Suspect]
     Indication: PROSTATE CANCER METASTATIC
     Dosage: 250 ML, SINGLE, INTRAVENOUS
     Route: 042
     Dates: start: 20110915, end: 20110915
  10. PROVENGE [Suspect]
  11. ASPIRIN [Concomitant]
  12. OMEPRAZOLE [Concomitant]
  13. DEMEROL [Suspect]
     Indication: CHILLS
     Dosage: 25 MG,
     Dates: start: 20111013, end: 20111013

REACTIONS (11)
  - DIZZINESS [None]
  - AGITATION [None]
  - ABNORMAL BEHAVIOUR [None]
  - AGGRESSION [None]
  - VOMITING [None]
  - DISORIENTATION [None]
  - NAUSEA [None]
  - CHILLS [None]
  - OXYGEN SATURATION DECREASED [None]
  - INFUSION RELATED REACTION [None]
  - CONFUSIONAL STATE [None]
